FAERS Safety Report 4865570-8 (Version None)
Quarter: 2005Q4

REPORT INFORMATION
  Report Type: 
  Country: None (occurrence: None)
  Receive Date: 20051219
  Receipt Date: 20051123
  Transmission Date: 20060501
  Serious: Yes (Hospitalization)
  Sender: FDA-Public Use
  Company Number: 219613

PATIENT
  Age: 73 Year
  Sex: Female

DRUGS (3)
  1. AVASTIN [Suspect]
     Indication: COLORECTAL CANCER METASTATIC
     Dosage: 350 MG, Q2W, INTRAVENOUS
     Route: 042
     Dates: start: 20050929, end: 20051029
  2. CAPECITABINE (CAPECITABINE) [Suspect]
     Dosage: 2500 MG, BID, ORAL
     Route: 048
     Dates: start: 20050929
  3. OXALIPLATIN (OXALIPLATIN) [Suspect]
     Indication: COLORECTAL CANCER METASTATIC
     Dosage: 180 MG, Q14D, INTRAVENOUS
     Route: 042

REACTIONS (2)
  - RETINAL VEIN THROMBOSIS [None]
  - RETINOPATHY [None]
